FAERS Safety Report 5005925-4 (Version None)
Quarter: 2006Q1

REPORT INFORMATION
  Report Type: 
  Country: None (occurrence: None)
  Receive Date: 20060320
  Receipt Date: 20050218
  Transmission Date: 20060701
  Serious: Yes (Hospitalization, Other)
  Sender: FDA-Public Use
  Company Number: 2005-02-1292

PATIENT
  Age: 43 Year
  Sex: Female

DRUGS (4)
  1. PEG-INTRON [Suspect]
     Indication: HEPATITIS C
     Dates: start: 20040901, end: 20041128
  2. REBETOL [Suspect]
     Indication: HEPATITIS C
     Dosage: ORAL
     Route: 048
     Dates: start: 20040901, end: 20041128
  3. VALIUM [Suspect]
  4. UNSPECIFIED THERAPEUTIC AGENT [Suspect]
     Dosage: 'ACTIVAN'

REACTIONS (9)
  - AGGRESSION [None]
  - ALCOHOLISM [None]
  - ALOPECIA [None]
  - CONFUSIONAL STATE [None]
  - DEPRESSION [None]
  - HAEMORRHAGE [None]
  - MEMORY IMPAIRMENT [None]
  - ROAD TRAFFIC ACCIDENT [None]
  - SUICIDE ATTEMPT [None]
